FAERS Safety Report 8171946-6 (Version None)
Quarter: 2012Q1

REPORT INFORMATION
  Report Type: 
  Country: None (occurrence: None)
  Receive Date: 20120228
  Receipt Date: 20120221
  Transmission Date: 20120608
  Serious: Yes (Hospitalization)
  Sender: FDA-Public Use
  Company Number: CA-ROCHE-1033925

PATIENT
  Sex: Female
  Weight: 63.56 kg

DRUGS (21)
  1. PREDNISONE [Concomitant]
     Indication: PREMEDICATION
     Route: 048
     Dates: start: 20111004, end: 20111004
  2. POTASSIUM CHLORIDE [Concomitant]
  3. FOLIC ACID [Concomitant]
  4. SULFATRIM [Concomitant]
  5. LORAZEPAM [Concomitant]
  6. RANITIDINE [Concomitant]
  7. ACETAMINOFEN [Concomitant]
     Indication: PREMEDICATION
     Dosage: ONCE
     Dates: start: 20111004, end: 20111004
  8. RITUXAN [Suspect]
     Indication: VASCULITIS
     Route: 042
     Dates: start: 20100209
  9. BACLOFEN [Concomitant]
  10. LOVAZA [Concomitant]
  11. ACIDOPHILUS [Concomitant]
  12. HYDROMORPH CONTIN [Concomitant]
  13. LYRICA [Concomitant]
  14. MULTI-VITAMINS [Concomitant]
  15. DIPHENHYDRAMINE HCL [Concomitant]
     Indication: PREMEDICATION
     Dosage: ONCE
     Route: 048
     Dates: start: 20111004, end: 20111004
  16. NORTRIPTYLINE HCL [Concomitant]
  17. MELATONIN [Concomitant]
  18. ALENDRONATE SODIUM [Concomitant]
  19. LASIX [Concomitant]
  20. CHLORIDE [Concomitant]
  21. B12 COMPLEX [Concomitant]

REACTIONS (2)
  - PNEUMONIA ASPIRATION [None]
  - PNEUMONIA [None]
